FAERS Safety Report 17362634 (Version 1)
Quarter: 2020Q1

REPORT INFORMATION
  Report Type: Spontaneous
  Country: CA (occurrence: CA)
  Receive Date: 20200203
  Receipt Date: 20200203
  Transmission Date: 20200409
  Serious: Yes (Other)
  Sender: FDA-Public Use
  Company Number: CA-TEVA-2020-CA-1178259

PATIENT
  Age: 76 Year

DRUGS (1)
  1. CIPROFLOXACIN. [Suspect]
     Active Substance: CIPROFLOXACIN
     Indication: PRODUCT USED FOR UNKNOWN INDICATION
     Route: 065

REACTIONS (6)
  - Coordination abnormal [Unknown]
  - Balance disorder [Unknown]
  - Petit mal epilepsy [Unknown]
  - Dysstasia [Unknown]
  - Dizziness [Unknown]
  - Visual impairment [Unknown]
